FAERS Safety Report 6552923-5 (Version None)
Quarter: 2010Q1

REPORT INFORMATION
  Report Type: 
  Country: None (occurrence: None)
  Receive Date: 20100122
  Receipt Date: 20100107
  Transmission Date: 20100710
  Serious: Yes (Hospitalization, Other)
  Sender: FDA-Public Use
  Company Number: 2010-00031

PATIENT
  Age: 16 Month
  Sex: Female

DRUGS (5)
  1. LEVETIRACETAM [Suspect]
     Indication: INFANTILE SPASMS
     Dosage: 1 D
  2. CLOBAZAM [Suspect]
     Indication: INFANTILE SPASMS
     Dosage: MICORGRAM/KG/DAY
  3. PREDNISOLONE [Concomitant]
  4. VIGABATRIN [Concomitant]
  5. CLONAZEPAM [Concomitant]

REACTIONS (11)
  - ASPIRATION [None]
  - BLISTER [None]
  - CEREBRAL ATROPHY [None]
  - CHOKING [None]
  - DRUG TOXICITY [None]
  - DYSPHAGIA [None]
  - LUNG CONSOLIDATION [None]
  - RESPIRATORY DISTRESS [None]
  - RESPIRATORY SYNCYTIAL VIRUS BRONCHIOLITIS [None]
  - SOMNOLENCE [None]
  - SWELLING FACE [None]
